FAERS Safety Report 16891900 (Version 1)
Quarter: 2019Q4

REPORT INFORMATION
  Report Type: Report from Study
  Country: CO (occurrence: CO)
  Receive Date: 20191007
  Receipt Date: 20191007
  Transmission Date: 20200122
  Serious: Yes (Hospitalization)
  Sender: FDA-Public Use
  Company Number: CO-TAKEDA-2019TUS055392

PATIENT
  Age: 62 Year

DRUGS (2)
  1. LOSARTAN DENK [Concomitant]
     Indication: HYPERTENSION
     Dosage: 50 MILLIGRAM
  2. BORTEZOMIB. [Suspect]
     Active Substance: BORTEZOMIB
     Indication: PLASMA CELL MYELOMA
     Dosage: UNK
     Route: 065

REACTIONS (1)
  - Chest pain [Unknown]

NARRATIVE: CASE EVENT DATE: 20150515
